FAERS Safety Report 7845232-5 (Version None)
Quarter: 2011Q4

REPORT INFORMATION
  Report Type: 
  Country: None (occurrence: None)
  Receive Date: 20111025
  Receipt Date: 20111020
  Transmission Date: 20120403
  Serious: Yes (Hospitalization)
  Sender: FDA-Public Use
  Company Number: DE-ABBOTT-11P-062-0858342-00

PATIENT
  Sex: Male

DRUGS (4)
  1. AMITRIPTYLINE HCL [Suspect]
     Indication: NEUROPATHY PERIPHERAL
     Route: 048
     Dates: start: 20101021, end: 20110912
  2. RAMIPRIL [Concomitant]
     Indication: HYPERTENSION
     Dosage: 5/25MG
     Route: 048
     Dates: start: 20090706
  3. LEUPROLIDE ACETATE [Suspect]
     Indication: PROSTATE CANCER
     Route: 058
     Dates: start: 20090101
  4. GABAPENTIN [Suspect]
     Indication: NEUROPATHY PERIPHERAL
     Route: 048
     Dates: start: 20101021, end: 20110912

REACTIONS (10)
  - BRAIN NATRIURETIC PEPTIDE INCREASED [None]
  - BLOOD CREATINE PHOSPHOKINASE INCREASED [None]
  - ALANINE AMINOTRANSFERASE INCREASED [None]
  - PLEURAL EFFUSION [None]
  - LIVER SCAN ABNORMAL [None]
  - ABDOMINAL PAIN [None]
  - BLOOD LACTATE DEHYDROGENASE INCREASED [None]
  - ASPARTATE AMINOTRANSFERASE INCREASED [None]
  - SPLEEN SCAN ABNORMAL [None]
  - OEDEMA PERIPHERAL [None]
